FAERS Safety Report 11160203 (Version 1)
Quarter: 2015Q2

REPORT INFORMATION
  Report Type: Spontaneous
  Country: US (occurrence: US)
  Receive Date: 20150603
  Receipt Date: 20150603
  Transmission Date: 20150821
  Serious: Yes (Other)
  Sender: FDA-Public Use
  Company Number: US-TEVA-561550USA

PATIENT
  Sex: Female

DRUGS (1)
  1. CALCITRIOL. [Suspect]
     Active Substance: CALCITRIOL
     Indication: VITAMIN SUPPLEMENTATION
     Route: 065

REACTIONS (4)
  - Nausea [Unknown]
  - Palpitations [Unknown]
  - Neoplasm malignant [Not Recovered/Not Resolved]
  - Diarrhoea [Unknown]
